FAERS Safety Report 6713488-8 (Version None)
Quarter: 2010Q2

REPORT INFORMATION
  Report Type: 
  Country: None (occurrence: None)
  Receive Date: 20100503
  Receipt Date: 20100419
  Transmission Date: 20101027
  Serious: Yes (Hospitalization)
  Sender: FDA-Public Use
  Company Number: 2009AL007481

PATIENT
  Age: 48 Year
  Sex: Female

DRUGS (6)
  1. DIAZEPAM TAB [Suspect]
     Dosage: 30 MG;QD;PO
     Route: 048
     Dates: start: 20090811, end: 20090824
  2. MIRTAZAPINE [Suspect]
     Dosage: 45 MG;QD;PO
     Route: 048
     Dates: start: 20090601
  3. VENLAFAXINE HYDROCHLORIDE [Suspect]
     Dosage: 150 MG;QD;PO
     Route: 048
     Dates: start: 20090722, end: 20090722
  4. SEROQUEL [Concomitant]
  5. BISOHEXAL [Concomitant]
  6. PANTOZOL [Concomitant]

REACTIONS (5)
  - DRUG INTERACTION [None]
  - DYSURIA [None]
  - FLANK PAIN [None]
  - PYREXIA [None]
  - URINARY RETENTION [None]
